FAERS Safety Report 15117988 (Version 1)
Quarter: 2018Q3

REPORT INFORMATION
  Report Type: Spontaneous
  Country: ES (occurrence: ES)
  Receive Date: 20180707
  Receipt Date: 20180707
  Transmission Date: 20181010
  Serious: Yes (Other)
  Sender: FDA-Public Use
  Company Number: ES-AUROBINDO-AUR-APL-2018-034142

PATIENT
  Age: 54 Year
  Sex: Male

DRUGS (2)
  1. LAMIVUDINE. [Suspect]
     Active Substance: LAMIVUDINE
     Indication: PRODUCT USED FOR UNKNOWN INDICATION
     Dosage: DOSAGE FORM: UNSPECIFIED ()
     Route: 065
     Dates: start: 201709
  2. IBRUTINIB [Suspect]
     Active Substance: IBRUTINIB
     Indication: CHRONIC LYMPHOCYTIC LEUKAEMIA
     Dosage: UNKNOWN
     Route: 048
     Dates: start: 201709

REACTIONS (4)
  - Purpura [Unknown]
  - Arthralgia [Recovering/Resolving]
  - Haemarthrosis [Unknown]
  - Epistaxis [Unknown]
